FAERS Safety Report 8987225 (Version 2)
Quarter: 2013Q1

REPORT INFORMATION
  Report Type: Spontaneous
  Country: FR (occurrence: FR)
  Receive Date: 20121226
  Receipt Date: 20130315
  Transmission Date: 20140127
  Serious: Yes (Hospitalization, Other)
  Sender: FDA-Public Use
  Company Number: FR-BRISTOL-MYERS SQUIBB COMPANY-17221458

PATIENT
  Age: 45 Year
  Sex: Female

DRUGS (8)
  1. ORENCIA [Suspect]
     Indication: RHEUMATOID ARTHRITIS
     Dosage: INF ON 30JAN13, 26FEB13
     Dates: start: 201104
  2. EFFERALGAN [Suspect]
  3. METHOTREXATE [Suspect]
     Indication: RHEUMATOID ARTHRITIS
     Route: 048
  4. FOSAMAX [Concomitant]
  5. SPECIAFOLDINE [Concomitant]
  6. MEDROL [Concomitant]
  7. LEVOTHYROX [Concomitant]
  8. ACECLOFENAC [Concomitant]
     Dosage: 1DF=100 (NO UNITS)

REACTIONS (4)
  - Pancreatitis acute [Recovered/Resolved]
  - Cholecystitis acute [Unknown]
  - Fibroma [Unknown]
  - Myelocyte count increased [Unknown]
